FAERS Safety Report 4688359-1 (Version None)
Quarter: 2005Q2

REPORT INFORMATION
  Report Type: 
  Country: None (occurrence: None)
  Receive Date: 20050609
  Receipt Date: 20050601
  Transmission Date: 20051028
  Serious: Yes (Death, Life-Threatening, Hospitalization)
  Sender: FDA-Public Use
  Company Number: BEWYE695225MAY05

PATIENT
  Age: 72 Year
  Sex: Male

DRUGS (2)
  1. GEMTUZUMAB OZOGAMICIN (GEMTUZUMAB OZOGAMICIN, INJECTION) [Suspect]
     Indication: ACUTE MYELOID LEUKAEMIA
     Dosage: 11.6 MG
     Dates: start: 20050217, end: 20050217
  2. GEMTUZUMAB OZOGAMICIN (GEMTUZUMAB OZOGAMICIN, INJECTION) [Suspect]
     Indication: ACUTE MYELOID LEUKAEMIA
     Dosage: 11.6 MG
     Dates: start: 20050303, end: 20050303

REACTIONS (17)
  - ASCITES [None]
  - BRONCHOPULMONARY ASPERGILLOSIS [None]
  - FLUID RETENTION [None]
  - HEPATIC CONGESTION [None]
  - HEPATIC STEATOSIS [None]
  - HEPATOMEGALY [None]
  - HEPATOTOXICITY [None]
  - HYPERBILIRUBINAEMIA [None]
  - LUNG DISORDER [None]
  - OEDEMA [None]
  - PANCYTOPENIA [None]
  - PERITONEAL HAEMORRHAGE [None]
  - POST PROCEDURAL COMPLICATION [None]
  - SHOCK HAEMORRHAGIC [None]
  - SPLEEN CONGESTION [None]
  - SPLENOMEGALY [None]
  - WEIGHT INCREASED [None]
